FAERS Safety Report 16637106 (Version 1)
Quarter: 2019Q3

REPORT INFORMATION
  Report Type: Spontaneous
  Country: GB (occurrence: GB)
  Receive Date: 20190726
  Receipt Date: 20190726
  Transmission Date: 20191004
  Serious: Yes (Hospitalization, Disabling, Congenital Anomaly)
  Sender: FDA-Public Use
  Company Number: GB-TEVA-2019-GB-1083673

PATIENT
  Age: 10 Year
  Sex: Female
  Weight: 33.5 kg

DRUGS (8)
  1. STIRIPENTOL [Suspect]
     Active Substance: STIRIPENTOL
     Indication: EPILEPSY
     Dosage: 1500 MILLIGRAM FOR EVERY 1 DAYS
     Route: 048
  2. LEVOTHYROXINE. [Concomitant]
     Active Substance: LEVOTHYROXINE
     Route: 065
  3. SODIUM VALPROATE [Suspect]
     Active Substance: VALPROATE SODIUM
     Indication: EPILEPSY
     Dosage: 1000 MILLIGRAM FOR EVERY 1 DAYS
     Route: 048
  4. GAVISCON [Concomitant]
     Active Substance: ALUMINUM HYDROXIDE\MAGNESIUM CARBONATE
     Route: 065
  5. CLOBAZAM. [Concomitant]
     Active Substance: CLOBAZAM
     Route: 065
  6. DOMPERIDONE [Concomitant]
     Active Substance: DOMPERIDONE
     Route: 065
  7. LACTULOSE. [Concomitant]
     Active Substance: LACTULOSE
     Route: 065
  8. OMEPRAZOLE. [Concomitant]
     Active Substance: OMEPRAZOLE
     Route: 065

REACTIONS (3)
  - Vomiting [Recovered/Resolved]
  - Fanconi syndrome [Recovering/Resolving]
  - Acute kidney injury [Recovering/Resolving]
